FAERS Safety Report 9715281 (Version 4)
Quarter: 2014Q1

REPORT INFORMATION
  Report Type: Spontaneous
  Country: US (occurrence: US)
  Receive Date: 20131127
  Receipt Date: 20140303
  Transmission Date: 20141002
  Serious: Yes (Other)
  Sender: FDA-Public Use
  Company Number: US-AMGEN-USASP2013075929

PATIENT
  Age: 52 Year
  Sex: Female

DRUGS (6)
  1. SIMVASTATIN [Concomitant]
     Dosage: 5 MG, UNK
  2. LISINOPRIL [Concomitant]
     Dosage: 5 MG, UNK
  3. ENBREL [Suspect]
     Indication: RHEUMATOID ARTHRITIS
     Dosage: 50 MG, WEEKLY
     Route: 058
     Dates: start: 2001
  4. VITAMIN C                          /00008001/ [Concomitant]
     Dosage: 500 MG, UNK
  5. PREDNISONE [Concomitant]
     Dosage: UNK
  6. LEXAPRO [Concomitant]
     Dosage: 5 MG, UNK

REACTIONS (7)
  - Hypogammaglobulinaemia [Unknown]
  - Immune system disorder [Recovered/Resolved]
  - Malaise [Recovered/Resolved]
  - Sinusitis [Unknown]
  - Nasopharyngitis [Unknown]
  - Infection [Unknown]
  - Injection site pain [Recovered/Resolved]
